FAERS Safety Report 16191590 (Version 3)
Quarter: 2020Q1

REPORT INFORMATION
  Report Type: Spontaneous
  Country: FR (occurrence: FR)
  Receive Date: 20190412
  Receipt Date: 20200311
  Transmission Date: 20200409
  Serious: Yes (Hospitalization)
  Sender: FDA-Public Use
  Company Number: FR-MYLANLABS-2019M1034607

PATIENT
  Age: 88 Year
  Sex: Female
  Weight: 84.6 kg

DRUGS (5)
  1. HYDROCHLOROTHIAZIDE. [Interacting]
     Active Substance: HYDROCHLOROTHIAZIDE
     Indication: HYPERTENSION
     Dosage: 12.5 MILLIGRAM
     Route: 048
     Dates: end: 20180915
  2. VALSARTAN. [Interacting]
     Active Substance: VALSARTAN
     Dosage: UNK
     Route: 048
  3. KETOPROFEN. [Interacting]
     Active Substance: KETOPROFEN
     Dosage: UNK
     Route: 048
  4. VALSARTAN. [Interacting]
     Active Substance: VALSARTAN
     Indication: HYPERTENSION
     Dosage: UNK
     Route: 048
     Dates: end: 20180915
  5. KETOPROFEN. [Suspect]
     Active Substance: KETOPROFEN
     Indication: PROCEDURAL PAIN
     Dosage: UNK,INCONNUE
     Route: 048
     Dates: start: 20180901, end: 20180915

REACTIONS (2)
  - Acute kidney injury [Recovered/Resolved]
  - Drug interaction [Recovered/Resolved]

NARRATIVE: CASE EVENT DATE: 20180915
